FAERS Safety Report 5676892-5 (Version None)
Quarter: 2008Q1

REPORT INFORMATION
  Report Type: 
  Country: None (occurrence: None)
  Receive Date: 20080324
  Receipt Date: 20080317
  Transmission Date: 20080703
  Serious: Yes (Other)
  Sender: FDA-Public Use
  Company Number: US-MERCK-0803USA01729

PATIENT
  Age: 49 Year
  Sex: Male

DRUGS (11)
  1. ISENTRESS [Suspect]
     Indication: HIV INFECTION
     Route: 048
  2. NORVIR [Concomitant]
     Route: 065
  3. LASIX [Concomitant]
     Route: 065
  4. MARINOL [Concomitant]
     Route: 065
  5. MS CONTIN [Concomitant]
     Route: 065
  6. COREG [Concomitant]
     Route: 065
  7. PREZISTA [Concomitant]
     Route: 065
  8. VIREAD [Concomitant]
     Route: 065
  9. EMTRIVA [Concomitant]
     Route: 065
  10. PRILOSEC [Concomitant]
     Route: 065
  11. AEROBID [Concomitant]
     Route: 065

REACTIONS (3)
  - CARDIAC FAILURE [None]
  - IMMUNE RECONSTITUTION SYNDROME [None]
  - STAPHYLOCOCCAL SEPSIS [None]
